FAERS Safety Report 15194328 (Version 1)
Quarter: 2018Q3

REPORT INFORMATION
  Report Type: Spontaneous
  Country: US (occurrence: US)
  Receive Date: 20180725
  Receipt Date: 20180725
  Transmission Date: 20181010
  Serious: No
  Sender: FDA-Public Use
  Company Number: US-GALDERMA-US18018607

PATIENT
  Sex: Female

DRUGS (9)
  1. PROACTIV MD DAILY OIL CONTROL SPF 30 [Suspect]
     Active Substance: AVOBENZONE\OCTISALATE\OCTOCRYLENE
     Indication: ACNE
     Route: 061
     Dates: start: 20180121, end: 20180326
  2. PROACTIV CLEANSING BAR [Concomitant]
     Indication: ACNE
     Route: 061
     Dates: start: 20180121, end: 20180326
  3. PROACTIV RENEWING CLEANSER [Concomitant]
     Active Substance: BENZOYL PEROXIDE
     Indication: ACNE
     Route: 061
     Dates: start: 20180121, end: 20180326
  4. PROACTIV REPAIRING TREATMENT [Concomitant]
     Active Substance: BENZOYL PEROXIDE
     Indication: ACNE
     Route: 061
     Dates: start: 20180121, end: 20180326
  5. PROACTIV MD DEEP CLEANSING FACE WASH [Concomitant]
     Active Substance: COSMETICS
     Indication: ACNE
     Route: 061
     Dates: start: 20180121, end: 20180326
  6. PROACTIV MOISTURE REPAIR [Concomitant]
     Active Substance: COSMETICS
     Indication: ACNE
     Route: 061
     Dates: start: 20180121, end: 20180326
  7. PROACTIV MD ADAPALENE ACNE TREATMENT [Suspect]
     Active Substance: ADAPALENE
     Indication: ACNE
     Dosage: 0.1%
     Route: 061
     Dates: start: 20180121, end: 20180326
  8. PROACTIV EYE BRIGHTENING SERUM [Concomitant]
     Active Substance: COSMETICS
     Indication: ACNE
     Route: 061
     Dates: start: 20180121, end: 20180326
  9. PROACTIV REVITALIZING TONER [Concomitant]
     Indication: ACNE
     Route: 061
     Dates: start: 20180121, end: 20180326

REACTIONS (3)
  - Skin irritation [Recovering/Resolving]
  - Erythema [Recovering/Resolving]
  - Dry skin [Recovering/Resolving]

NARRATIVE: CASE EVENT DATE: 20180128
